FAERS Safety Report 9852508 (Version 1)
Quarter: 2014Q1

REPORT INFORMATION
  Report Type: Spontaneous
  Country: FR (occurrence: FR)
  Receive Date: 20140129
  Receipt Date: 20140129
  Transmission Date: 20141002
  Serious: Yes (Other)
  Sender: FDA-Public Use
  Company Number: FR-BRISTOL-MYERS SQUIBB COMPANY-20086773

PATIENT
  Age: 54 Year
  Sex: Male

DRUGS (6)
  1. BARACLUDE TABS [Suspect]
     Indication: HEPATITIS B
     Dosage: 1 DF: 1 UNIT NOS.
     Route: 048
     Dates: start: 200803
  2. EPIVIR [Suspect]
     Route: 048
     Dates: start: 20071027
  3. KALETRA [Suspect]
     Route: 048
     Dates: start: 2004
  4. INVIRASE [Suspect]
     Route: 048
     Dates: start: 20051125
  5. ACTRAPID [Suspect]
     Route: 058
     Dates: start: 20071227
  6. LANTUS [Suspect]
     Route: 058
     Dates: start: 20071227

REACTIONS (1)
  - Agranulocytosis [Not Recovered/Not Resolved]
